FAERS Safety Report 5239624-0 (Version None)
Quarter: 2007Q1

REPORT INFORMATION
  Report Type: 
  Country: None (occurrence: None)
  Receive Date: 20070216
  Receipt Date: 20070213
  Transmission Date: 20070707
  Serious: Yes (Other)
  Sender: FDA-Public Use
  Company Number: JP-JPN-A200700169

PATIENT
  Age: 70 Year
  Sex: Male

DRUGS (4)
  1. FLUTIDE DISKUS [Suspect]
     Indication: ASTHMA
     Dosage: 200MCG TWICE PER DAY
     Route: 055
     Dates: start: 20070111, end: 20070113
  2. MEDICON [Concomitant]
     Indication: BRONCHITIS
     Dosage: 45MG PER DAY
     Route: 048
     Dates: start: 20070111
  3. CLARITHROMYCIN [Concomitant]
     Indication: ASTHMA
     Dosage: 400MG PER DAY
     Route: 048
     Dates: start: 20070111
  4. MUCOSOLVAN [Concomitant]
     Indication: ASTHMA
     Dosage: 45MG PER DAY
     Route: 048
     Dates: start: 20070111

REACTIONS (3)
  - AKINESIA [None]
  - HYPOAESTHESIA [None]
  - MONOPLEGIA [None]
